FAERS Safety Report 23518710 (Version 3)
Quarter: 2024Q1

REPORT INFORMATION
  Report Type: Report from Study
  Country: US (occurrence: US)
  Receive Date: 20240213
  Receipt Date: 20240312
  Transmission Date: 20240409
  Serious: Yes (Hospitalization, Other)
  Sender: FDA-Public Use
  Company Number: US-PFIZER INC-PV202400020539

PATIENT
  Age: 50 Year
  Sex: Male

DRUGS (8)
  1. INLYTA [Suspect]
     Active Substance: AXITINIB
     Indication: Renal cancer
     Dosage: TAKE 1 TABLET (5 MG) BY MOUTH TWICE DAILY
     Route: 048
     Dates: start: 20240124
  2. BACTRIM [Concomitant]
     Active Substance: SULFAMETHOXAZOLE\TRIMETHOPRIM
  3. FOLIC ACID [Concomitant]
     Active Substance: FOLIC ACID
  4. NPLATE [Concomitant]
     Active Substance: ROMIPLOSTIM
  5. PANTOPRAZOLE [Concomitant]
     Active Substance: PANTOPRAZOLE
  6. PANTOPRAZOLE SODIUM [Concomitant]
     Active Substance: PANTOPRAZOLE SODIUM
  7. PREDNISONE [Concomitant]
     Active Substance: PREDNISONE
  8. PROCARDIA [Concomitant]
     Active Substance: NIFEDIPINE
     Dosage: CR

REACTIONS (15)
  - Aphonia [Recovered/Resolved]
  - Dysphonia [Recovered/Resolved]
  - Glossodynia [Recovered/Resolved]
  - Splenic embolism [Not Recovered/Not Resolved]
  - Fatigue [Recovered/Resolved]
  - Abdominal operation [Recovered/Resolved]
  - Blood urine present [Not Recovered/Not Resolved]
  - Ageusia [Not Recovered/Not Resolved]
  - Oral pain [Not Recovered/Not Resolved]
  - Abdominal pain lower [Not Recovered/Not Resolved]
  - Fatigue [Not Recovered/Not Resolved]
  - Palmar-plantar erythrodysaesthesia syndrome [Not Recovered/Not Resolved]
  - Glossodynia [Not Recovered/Not Resolved]
  - Insomnia [Not Recovered/Not Resolved]
  - Product dose omission issue [Not Recovered/Not Resolved]
